FAERS Safety Report 9342525 (Version 1)
Quarter: 2013Q2

REPORT INFORMATION
  Report Type: Spontaneous
  Country: US (occurrence: US)
  Receive Date: 20130611
  Receipt Date: 20130611
  Transmission Date: 20140414
  Serious: No
  Sender: FDA-Public Use
  Company Number: US-US-EMD SERONO, INC.-7094459

PATIENT
  Sex: Female

DRUGS (5)
  1. REBIF [Suspect]
     Indication: MULTIPLE SCLEROSIS
     Route: 058
     Dates: start: 20110817, end: 201302
  2. IBUPROFEN [Concomitant]
     Indication: PREMEDICATION
  3. STEROIDS [Concomitant]
     Indication: PRODUCT USED FOR UNKNOWN INDICATION
  4. PROZAC [Concomitant]
     Indication: PRODUCT USED FOR UNKNOWN INDICATION
  5. AMBIEN [Concomitant]
     Indication: INSOMNIA

REACTIONS (4)
  - Asthenopia [Recovered/Resolved]
  - Influenza like illness [Unknown]
  - Injection site pain [Not Recovered/Not Resolved]
  - White blood cell count decreased [Unknown]
